FAERS Safety Report 9060537 (Version 1)
Quarter: 2013Q1

REPORT INFORMATION
  Report Type: Other
  Country: IT (occurrence: GB)
  Receive Date: 20130212
  Receipt Date: 20130212
  Transmission Date: 20140127
  Serious: Yes (Hospitalization)
  Sender: FDA-Public Use
  Company Number: IT-WATSON-2013-02209

PATIENT
  Age: 68 None
  Sex: Male

DRUGS (7)
  1. SERTRALINE HYDROCHLORIDE (UNKNOWN) [Suspect]
     Indication: ANXIETY
     Dosage: 50 MG, DAILY
     Route: 048
     Dates: start: 20130112, end: 20130119
  2. ASCRIPTIN [Concomitant]
     Indication: PRODUCT USED FOR UNKNOWN INDICATION
     Dosage: UNK
     Route: 065
  3. SIVASTIN [Concomitant]
     Indication: PRODUCT USED FOR UNKNOWN INDICATION
     Dosage: 20MG FILM COATED TABLET
     Route: 065
  4. OMNIC [Concomitant]
     Indication: PRODUCT USED FOR UNKNOWN INDICATION
     Dosage: 0.4MG HARD CAPSULE MODIFIED RELEASE
     Route: 065
  5. XANAX [Concomitant]
     Indication: PRODUCT USED FOR UNKNOWN INDICATION
     Dosage: 0.75MG/ML ORAL DROPS SOLUTION
     Route: 065
  6. ENAPREN [Concomitant]
     Indication: PRODUCT USED FOR UNKNOWN INDICATION
     Dosage: 5 MG TABLETS
     Route: 065
  7. ATENOLOL [Concomitant]
     Indication: PRODUCT USED FOR UNKNOWN INDICATION
     Dosage: UNKNOWN
     Route: 065

REACTIONS (5)
  - Asthenia [Recovering/Resolving]
  - Confusional state [Recovering/Resolving]
  - Malaise [Recovering/Resolving]
  - Presyncope [Recovering/Resolving]
  - Decreased appetite [Recovering/Resolving]
